FAERS Safety Report 8857401 (Version 3)
Quarter: 2014Q2

REPORT INFORMATION
  Report Type: Spontaneous
  Country: US (occurrence: US)
  Receive Date: 20121024
  Receipt Date: 20140603
  Transmission Date: 20141212
  Serious: No
  Sender: FDA-Public Use
  Company Number: US-009507513-1210USA007523

PATIENT
  Age: 18 Year
  Sex: Female
  Weight: 62.59 kg

DRUGS (1)
  1. IMPLANON [Suspect]
     Indication: CONTRACEPTION
     Dosage: 1 ROD, LEFT ARM
     Dates: start: 20110117

REACTIONS (9)
  - Pain in extremity [Recovered/Resolved]
  - Pain in extremity [Recovered/Resolved]
  - Weight increased [Unknown]
  - Device difficult to use [Unknown]
  - Device deployment issue [Unknown]
  - Incorrect drug administration duration [Unknown]
  - Medical device complication [Unknown]
  - Medical device complication [Unknown]
  - Medical device complication [Unknown]
